FAERS Safety Report 7550793-X (Version None)
Quarter: 2011Q2

REPORT INFORMATION
  Report Type: 
  Country: None (occurrence: None)
  Receive Date: 20110616
  Receipt Date: 20110601
  Transmission Date: 20111010
  Serious: Yes (Death, Life-Threatening, Hospitalization, Other)
  Sender: FDA-Public Use
  Company Number: US-JNJFOC-NSADSS2002018092

PATIENT
  Sex: Male
  Weight: 74 kg

DRUGS (21)
  1. REMICADE [Suspect]
     Route: 041
     Dates: start: 20011108
  2. REMICADE [Suspect]
     Route: 041
     Dates: start: 20020522, end: 20020522
  3. PREDNISONE [Concomitant]
     Dates: start: 19940101, end: 20010101
  4. IMURAN [Suspect]
     Indication: CROHN'S DISEASE
     Route: 048
     Dates: start: 19970325, end: 19971201
  5. IMURAN [Suspect]
     Route: 048
     Dates: start: 19990614, end: 20020522
  6. IMURAN [Suspect]
     Route: 048
     Dates: start: 20011025
  7. PREDNISONE [Concomitant]
  8. PROBIOTICA [Concomitant]
  9. REMICADE [Suspect]
     Route: 041
     Dates: start: 20011024, end: 20011024
  10. CALCIUM CARBONATE [Concomitant]
     Route: 065
  11. ENTOCORT EC [Concomitant]
     Dates: start: 20010101, end: 20020201
  12. BUDESONIDE [Concomitant]
  13. MULTI-VITAMIN [Concomitant]
  14. REMICADE [Suspect]
     Indication: CROHN'S DISEASE
     Route: 041
     Dates: start: 20020225, end: 20020225
  15. ENTOCORT EC [Concomitant]
  16. MACROBID [Concomitant]
  17. FERROUS SULFATE TAB [Concomitant]
     Route: 065
  18. VITAMIN E [Concomitant]
  19. REMICADE [Suspect]
     Route: 041
     Dates: start: 20011210
  20. IMURAN [Suspect]
     Route: 048
     Dates: start: 19971201, end: 19990613
  21. MERCAPTOPURINE [Concomitant]
     Indication: PRODUCT USED FOR UNKNOWN INDICATION
     Route: 065
     Dates: start: 20020701, end: 20020801

REACTIONS (9)
  - CONVULSION [None]
  - SMALL INTESTINAL ULCER HAEMORRHAGE [None]
  - MUCOSAL INFLAMMATION [None]
  - NEUTROPENIA [None]
  - HEPATOSPLENIC T-CELL LYMPHOMA [None]
  - PYREXIA [None]
  - PANCYTOPENIA [None]
  - TUMOUR LYSIS SYNDROME [None]
  - HAEMORRHAGIC DIATHESIS [None]
